FAERS Safety Report 8378898-4 (Version None)
Quarter: 2012Q2

REPORT INFORMATION
  Report Type: 
  Country: None (occurrence: None)
  Receive Date: 20120522
  Receipt Date: 20120522
  Transmission Date: 20120825
  Serious: Yes (Life-Threatening, Hospitalization)
  Sender: FDA-Public Use
  Company Number: None

PATIENT
  Age: 69 Year
  Sex: Female

DRUGS (7)
  1. COREG [Suspect]
  2. BENAZEPRIL HYDROCHLORIDE [Suspect]
     Indication: HYPERTENSION
     Dosage: TAKE 1 TABLET ONCE A DAY
     Dates: end: 20120430
  3. CLARINEX [Suspect]
  4. CLONIDINE [Suspect]
  5. ESTRACE [Concomitant]
  6. MOMETASONE CREAM [Concomitant]
  7. XANAX [Concomitant]

REACTIONS (2)
  - HEADACHE [None]
  - BLOOD PRESSURE INCREASED [None]
